FAERS Safety Report 16542543 (Version 3)
Quarter: 2019Q3

REPORT INFORMATION
  Report Type: Spontaneous
  Country: ES (occurrence: ES)
  Receive Date: 20190709
  Receipt Date: 20190905
  Transmission Date: 20191004
  Serious: Yes (Hospitalization, Other)
  Sender: FDA-Public Use
  Company Number: ES-BRISTOL-MYERS SQUIBB COMPANY-BMS-2019-064722

PATIENT
  Age: 59 Year
  Sex: Female
  Weight: 48 kg

DRUGS (1)
  1. NIVOLUMAB [Suspect]
     Active Substance: NIVOLUMAB
     Indication: MALIGNANT MELANOMA
     Dosage: UNK
     Route: 065
     Dates: start: 20190517

REACTIONS (9)
  - Malignant neoplasm progression [Unknown]
  - Superinfection [Unknown]
  - Pyrexia [Unknown]
  - Immune-mediated adverse reaction [Unknown]
  - Pleural effusion [Unknown]
  - Hypophysitis [Unknown]
  - Tachypnoea [Unknown]
  - Transplant rejection [Unknown]
  - Respiratory failure [Unknown]

NARRATIVE: CASE EVENT DATE: 20190621
